FAERS Safety Report 4987843-0 (Version None)
Quarter: 2006Q2

REPORT INFORMATION
  Report Type: 
  Country: None (occurrence: None)
  Receive Date: 20060427
  Receipt Date: 20060427
  Transmission Date: 20061013
  Serious: Yes (Life-Threatening)
  Sender: FDA-Public Use
  Company Number: None

PATIENT
  Sex: Female
  Weight: 68.7 kg

DRUGS (2)
  1. MARINOL [Suspect]
     Dosage: 10 MG SINGLE PO
     Route: 048
     Dates: start: 20060417, end: 20060417
  2. MARVELON [Concomitant]

REACTIONS (11)
  - ANXIETY [None]
  - ARTERIOSPASM CORONARY [None]
  - CHEST DISCOMFORT [None]
  - DIZZINESS [None]
  - DYSKINESIA [None]
  - ELECTROCARDIOGRAM CHANGE [None]
  - MUSCLE TWITCHING [None]
  - MYOCARDIAL ISCHAEMIA [None]
  - PALPITATIONS [None]
  - PANIC REACTION [None]
  - TROPONIN INCREASED [None]
